FAERS Safety Report 19381860 (Version 1)
Quarter: 2021Q2

REPORT INFORMATION
  Report Type: Spontaneous
  Country: US (occurrence: US)
  Receive Date: 20210607
  Receipt Date: 20210607
  Transmission Date: 20210717
  Serious: Yes (Hospitalization, Other)
  Sender: FDA-Public Use
  Company Number: US-AMNEAL PHARMACEUTICALS-2020-AMRX-02999

PATIENT
  Age: 76 Year
  Sex: Male
  Weight: 93 kg

DRUGS (1)
  1. SPIRONOLACTONE. [Suspect]
     Active Substance: SPIRONOLACTONE
     Indication: HYPERTENSION
     Dosage: 25 MILLIGRAM, MORNING
     Route: 048
     Dates: start: 2019

REACTIONS (8)
  - Breast pain [Not Recovered/Not Resolved]
  - Pain in extremity [Recovered/Resolved]
  - Benign breast neoplasm [Not Recovered/Not Resolved]
  - Atrial fibrillation [Recovered/Resolved]
  - Post procedural contusion [Not Recovered/Not Resolved]
  - Bundle branch block left [Recovered/Resolved]
  - Headache [Recovered/Resolved]
  - Pyrexia [Recovered/Resolved]

NARRATIVE: CASE EVENT DATE: 202008
